FAERS Safety Report 6689680-8 (Version None)
Quarter: 2010Q2

REPORT INFORMATION
  Report Type: 
  Country: None (occurrence: None)
  Receive Date: 20100421
  Receipt Date: 20100420
  Transmission Date: 20101027
  Serious: Yes (Other)
  Sender: FDA-Public Use
  Company Number: US-RB-007403-10

PATIENT
  Sex: Male

DRUGS (1)
  1. MUCINEX FULL FORCE NASAL SPRAY [Suspect]
     Route: 045

REACTIONS (4)
  - BLOOD PRESSURE INCREASED [None]
  - DRUG DEPENDENCE [None]
  - HYPOACUSIS [None]
  - SINUS DISORDER [None]
